FAERS Safety Report 8885508 (Version 1)
Quarter: 2012Q4

REPORT INFORMATION
  Report Type: 
  Country: US (occurrence: US)
  Receive Date: 20121101
  Receipt Date: 20121101
  Transmission Date: 20130627
  Serious: Yes (Hospitalization, Other)
  Sender: FDA-Public Use
  Company Number: US-PFIZER INC-2012269996

PATIENT
  Age: 85 Year
  Sex: Female

DRUGS (3)
  1. LIPITOR [Suspect]
     Indication: HIGH CHOLESTEROL
     Dosage: UNK
  2. TYLENOL [Suspect]
     Indication: PAIN
     Dosage: 325 mg, as needed
     Route: 048
  3. TRICOR [Suspect]
     Indication: HIGH CHOLESTEROL
     Dosage: UNK

REACTIONS (5)
  - Blood cholesterol decreased [Recovered/Resolved]
  - Liver disorder [Unknown]
  - Malaise [Unknown]
  - Blood disorder [Unknown]
  - Overdose [Unknown]
